FAERS Safety Report 19036844 (Version 1)
Quarter: 2021Q1

REPORT INFORMATION
  Report Type: Spontaneous
  Country: US (occurrence: US)
  Receive Date: 20210318
  Receipt Date: 20210318
  Transmission Date: 20210420
  Serious: Yes (Hospitalization, Other)
  Sender: FDA-Public Use
  Company Number: None

PATIENT
  Age: 23 Year
  Sex: Male
  Weight: 75 kg

DRUGS (3)
  1. MALE RX 1000MG [DIETARY SUPPLEMENT] [Suspect]
     Active Substance: DIETARY SUPPLEMENT
     Indication: SEXUAL DYSFUNCTION
     Route: 048
     Dates: start: 20210316, end: 20210316
  2. MARIJUANA [Suspect]
     Active Substance: CANNABIS SATIVA SUBSP. INDICA TOP
  3. AMPHETAMINES [Suspect]
     Active Substance: AMPHETAMINE

REACTIONS (9)
  - Anxiety [None]
  - Hyperhidrosis [None]
  - Nausea [None]
  - Heart rate increased [None]
  - Electrocardiogram QT prolonged [None]
  - Electrocardiogram ST segment depression [None]
  - Emotional distress [None]
  - Blood pressure increased [None]
  - Troponin I increased [None]

NARRATIVE: CASE EVENT DATE: 20210316
